FAERS Safety Report 5844936-3 (Version None)
Quarter: 2008Q3

REPORT INFORMATION
  Report Type: 
  Country: None (occurrence: None)
  Receive Date: 20080814
  Receipt Date: 20080811
  Transmission Date: 20090109
  Serious: Yes (Life-Threatening)
  Sender: FDA-Public Use
  Company Number: FR-AVENTIS-200811901FR

PATIENT
  Age: 58 Year
  Sex: Male

DRUGS (11)
  1. LOVENOX [Suspect]
     Route: 042
     Dates: start: 20080301, end: 20080407
  2. LOVENOX [Suspect]
     Route: 042
     Dates: start: 20080408, end: 20080409
  3. TAZOCILLINE [Suspect]
     Indication: SUPERINFECTION
     Route: 042
     Dates: start: 20080313, end: 20080408
  4. MOPRAL [Suspect]
     Route: 048
     Dates: end: 20080101
  5. METFORMIN HCL [Concomitant]
     Dosage: DOSE: 1-0-1
     Route: 048
     Dates: start: 20000101
  6. NOVONORM [Concomitant]
     Dosage: DOSE: 2-4-4
     Route: 048
  7. LANTUS [Concomitant]
     Route: 058
  8. ADANCOR [Concomitant]
     Dosage: DOSE: 20-0-20
     Route: 048
  9. KARDEGIC                           /00002703/ [Concomitant]
     Dosage: DOSE: 0-160-0
     Route: 048
  10. BISOPROLOL FUMARATE [Concomitant]
     Dosage: DOSE: 10-0-0
     Route: 048
  11. IRBESARTAN [Concomitant]
     Dosage: DOSE: 150-0-0
     Route: 048

REACTIONS (1)
  - AGRANULOCYTOSIS [None]
